FAERS Safety Report 11159414 (Version 1)
Quarter: 2015Q2

REPORT INFORMATION
  Report Type: Spontaneous
  Country: US (occurrence: US)
  Receive Date: 20150603
  Receipt Date: 20150603
  Transmission Date: 20150821
  Serious: No
  Sender: FDA-Public Use
  Company Number: US-ASTRAZENECA-2015SE52119

PATIENT
  Age: 746 Month
  Sex: Female

DRUGS (3)
  1. INVOKAMET [Concomitant]
     Active Substance: CANAGLIFLOZIN\METFORMIN HYDROCHLORIDE
     Indication: TYPE 2 DIABETES MELLITUS
     Dosage: 100MG/1000MG TWICE DAILY
     Route: 048
  2. BYDUREON [Suspect]
     Active Substance: EXENATIDE
     Indication: TYPE 2 DIABETES MELLITUS
     Dosage: PEN 2 MG 4 COUNT; 2MG ONCE WEEKLY
     Route: 058
     Dates: start: 201502
  3. ANGIOTENSIN RECEPTOR BLOCKER [Concomitant]
     Indication: DIABETES MELLITUS

REACTIONS (4)
  - Weight decreased [Unknown]
  - Injection site erythema [Recovered/Resolved]
  - Injection site mass [Not Recovered/Not Resolved]
  - Injection site pruritus [Recovered/Resolved]

NARRATIVE: CASE EVENT DATE: 201502
